FAERS Safety Report 17429576 (Version 2)
Quarter: 2020Q1

REPORT INFORMATION
  Report Type: Spontaneous
  Country: DE (occurrence: DE)
  Receive Date: 20200218
  Receipt Date: 20200309
  Transmission Date: 20200409
  Serious: Yes (Disabling)
  Sender: FDA-Public Use
  Company Number: DE-FERRINGPH-2020FE00878

PATIENT
  Age: 9 Year
  Sex: Female

DRUGS (2)
  1. ZOMACTON [Suspect]
     Active Substance: SOMATROPIN
     Dosage: 0.03 MG/KG BODY WEIGHT, 1 TIME DAILY
     Route: 058
     Dates: start: 20110103, end: 201609
  2. ZOMACTON [Suspect]
     Active Substance: SOMATROPIN
     Indication: GROWTH HORMONE DEFICIENCY
     Dosage: 0.03 MG/KG BODY WEIGHT, 1 TIME DAILY
     Route: 058
     Dates: start: 201612, end: 201808

REACTIONS (1)
  - Musculoskeletal stiffness [Not Recovered/Not Resolved]
